FAERS Safety Report 20506023 (Version 1)
Quarter: 2022Q1

REPORT INFORMATION
  Report Type: Spontaneous
  Country: US (occurrence: None)
  Receive Date: 20220221
  Receipt Date: 20220221
  Transmission Date: 20220423
  Serious: Yes (unspecified)
  Sender: FDA-Public Use
  Company Number: None

PATIENT
  Age: 51 Year
  Sex: Female

DRUGS (1)
  1. OTEZLA [Suspect]
     Active Substance: APREMILAST
     Indication: Psoriatic arthropathy
     Dosage: FREQUENCY : TWICE A DAY;?
     Route: 048
     Dates: start: 20200914

REACTIONS (5)
  - Psoriasis [None]
  - Dermatitis psoriasiform [None]
  - Cellulitis [None]
  - Therapeutic product effect decreased [None]
  - Infection [None]

NARRATIVE: CASE EVENT DATE: 20220221
